FAERS Safety Report 4535302-1 (Version None)
Quarter: 2004Q4

REPORT INFORMATION
  Report Type: 
  Country: None (occurrence: None)
  Receive Date: 20041214
  Receipt Date: 20040919
  Transmission Date: 20050328
  Serious: No
  Sender: FDA-Public Use
  Company Number: 2004236785US

PATIENT
  Sex: Female

DRUGS (1)
  1. BEXTRA [Suspect]
     Dosage: ORAL
     Route: 048

REACTIONS (2)
  - VOMITING [None]
  - WHEEZING [None]
